FAERS Safety Report 24546329 (Version 1)
Quarter: 2024Q4

REPORT INFORMATION
  Report Type: Other
  Country: IN (occurrence: IN)
  Receive Date: 20241024
  Receipt Date: 20241024
  Transmission Date: 20250115
  Serious: Yes (Death, Hospitalization)
  Sender: ORBION PHARMACEUTICALS PRIVATE LIMITED
  Company Number: IN-OrBion Pharmaceuticals Private Limited-2163282

PATIENT
  Age: 30 Year
  Sex: Male

DRUGS (2)
  1. TERBINAFINE HYDROCHLORIDE [Suspect]
     Active Substance: TERBINAFINE HYDROCHLORIDE
     Indication: Body tinea
  2. ITRACONAZOLE [Suspect]
     Active Substance: ITRACONAZOLE

REACTIONS (2)
  - Cutaneous vasculitis [Fatal]
  - Multiple organ dysfunction syndrome [Fatal]
